FAERS Safety Report 4999149-4 (Version None)
Quarter: 2006Q2

REPORT INFORMATION
  Report Type: 
  Country: None (occurrence: None)
  Receive Date: 20060509
  Receipt Date: 20060421
  Transmission Date: 20061013
  Serious: Yes (Death)
  Sender: FDA-Public Use
  Company Number: US200604002505

PATIENT
  Sex: Female
  Weight: 1.6 kg

DRUGS (2)
  1. F1D-MC-HGKK BORDERLINE PERSONALITY DISOR (OLANZAPINE) TABLET [Suspect]
     Dosage: 2 D/F, DAILY (1/D), TRANSPLACENTAL
     Route: 064
     Dates: end: 20050731
  2. ORTHO EVRA [Concomitant]

REACTIONS (4)
  - DEATH NEONATAL [None]
  - DRUG EXPOSURE DURING PREGNANCY [None]
  - PREMATURE BABY [None]
  - TRISOMY 13 [None]
